FAERS Safety Report 16062717 (Version 1)
Quarter: 2019Q1

REPORT INFORMATION
  Report Type: Spontaneous
  Country: US (occurrence: US)
  Receive Date: 20190213
  Receipt Date: 20190213
  Transmission Date: 20190418
  Serious: No
  Sender: FDA-Public Use
  Company Number: None

PATIENT
  Age: 45 Year
  Sex: Female

DRUGS (4)
  1. TRAMADOL. [Concomitant]
     Active Substance: TRAMADOL
  2. TURMERIC TEA [Concomitant]
  3. ANASTROZOLE. [Concomitant]
     Active Substance: ANASTROZOLE
  4. IBRANCE [Suspect]
     Active Substance: PALBOCICLIB
     Indication: BREAST CANCER
     Route: 048
     Dates: start: 20180601

REACTIONS (2)
  - Nausea [None]
  - Jugular vein thrombosis [None]

NARRATIVE: CASE EVENT DATE: 20181001
